FAERS Safety Report 5750944-3 (Version None)
Quarter: 2008Q2

REPORT INFORMATION
  Report Type: 
  Country: None (occurrence: None)
  Receive Date: 20080528
  Receipt Date: 20080519
  Transmission Date: 20081010
  Serious: Yes (Other)
  Sender: FDA-Public Use
  Company Number: US-JNJFOC-20080400840

PATIENT
  Age: 14 Year
  Sex: Male

DRUGS (4)
  1. CONCERTA [Suspect]
     Indication: ATTENTION DEFICIT/HYPERACTIVITY DISORDER
     Route: 048
  2. TOPAMAX [Concomitant]
     Indication: CONVULSION
  3. SEROQUEL [Concomitant]
  4. LITHIUM CARBONATE [Concomitant]

REACTIONS (3)
  - CONVULSION [None]
  - MENTAL DISORDER [None]
  - PSYCHOTIC DISORDER [None]
